FAERS Safety Report 20924898 (Version 2)
Quarter: 2022Q2

REPORT INFORMATION
  Report Type: Spontaneous
  Country: JP (occurrence: JP)
  Receive Date: 20220607
  Receipt Date: 20220622
  Transmission Date: 20220721
  Serious: Yes (Other)
  Sender: FDA-Public Use
  Company Number: JP-PFIZER INC-202200785373

PATIENT
  Age: 49 Year
  Sex: Female

DRUGS (10)
  1. AROMASIN [Suspect]
     Active Substance: EXEMESTANE
     Dosage: UNK
  2. PACLITAXEL [Suspect]
     Active Substance: PACLITAXEL
     Dosage: UNK
  3. AVASTIN [Suspect]
     Active Substance: BEVACIZUMAB
     Dosage: UNK
  4. LETROZOLE [Suspect]
     Active Substance: LETROZOLE
     Dosage: UNK
  5. LEUPROLIDE ACETATE [Suspect]
     Active Substance: LEUPROLIDE ACETATE
     Dosage: UNK
  6. TS-1 [Suspect]
     Active Substance: GIMERACIL\OTERACIL\TEGAFUR
     Dosage: UNK
  7. EVEROLIMUS [Suspect]
     Active Substance: EVEROLIMUS
     Dosage: UNK
  8. FULVESTRANT [Suspect]
     Active Substance: FULVESTRANT
     Dosage: UNK
  9. ABEMACICLIB [Suspect]
     Active Substance: ABEMACICLIB
     Dosage: UNK
  10. ERIBULIN [Suspect]
     Active Substance: ERIBULIN
     Dosage: UNK

REACTIONS (1)
  - Pleural effusion [Unknown]
